FAERS Safety Report 12770654 (Version 2)
Quarter: 2016Q3

REPORT INFORMATION
  Report Type: Report from Study
  Country: NL (occurrence: NL)
  Receive Date: 20160922
  Receipt Date: 20160923
  Transmission Date: 20161109
  Serious: Yes (Hospitalization)
  Sender: FDA-Public Use
  Company Number: NL-ABBVIE-16P-114-1639817-00

PATIENT
  Sex: Male
  Weight: 76 kg

DRUGS (1)
  1. DUODOPA [Suspect]
     Active Substance: CARBIDOPA\LEVODOPA
     Indication: PARKINSON^S DISEASE
     Dosage: MD: 9.0, CD: 4.2, ED: 2.5
     Route: 050
     Dates: start: 20150603

REACTIONS (2)
  - Cartilage atrophy [Unknown]
  - Arthropathy [Recovered/Resolved]
